FAERS Safety Report 13789538 (Version 1)
Quarter: 2017Q3

REPORT INFORMATION
  Report Type: Spontaneous
  Country: US (occurrence: US)
  Receive Date: 20170725
  Receipt Date: 20170725
  Transmission Date: 20171127
  Serious: No
  Sender: FDA-Public Use
  Company Number: US-UNITED THERAPEUTICS-UNT-2017-001578

PATIENT
  Sex: Female

DRUGS (1)
  1. REMODULIN [Suspect]
     Active Substance: TREPROSTINIL
     Indication: PULMONARY ARTERIAL HYPERTENSION
     Dosage: 0.06125 ?G/KG, CONTINUING
     Route: 058
     Dates: start: 20130103

REACTIONS (1)
  - Infusion site discharge [Recovering/Resolving]

NARRATIVE: CASE EVENT DATE: 20170127
